FAERS Safety Report 22609934 (Version 2)
Quarter: 2023Q2

REPORT INFORMATION
  Report Type: Spontaneous
  Country: US (occurrence: US)
  Receive Date: 20230616
  Receipt Date: 20230620
  Transmission Date: 20230722
  Serious: No
  Sender: FDA-Public Use
  Company Number: US-SANOFI-01649835

PATIENT
  Age: 51 Year
  Sex: Female

DRUGS (6)
  1. LANTUS SOLOSTAR [Suspect]
     Active Substance: INSULIN GLARGINE
     Indication: Type 2 diabetes mellitus
     Dosage: SLIDING SCALE QD AND DRUG TREATMENT DURATION:2 MONTHS HAS BEEN INCREASING HER DOSAGE OF LANTUS SOLOS
     Route: 065
  2. METHOTREXATE [Concomitant]
     Active Substance: METHOTREXATE
  3. VITAMIN B12 [Concomitant]
     Active Substance: CYANOCOBALAMIN
  4. OZEMPIC [Concomitant]
     Active Substance: SEMAGLUTIDE
  5. AJOVY [Concomitant]
     Active Substance: FREMANEZUMAB-VFRM
  6. HUMAN IMMUNOGLOBULIN G [Concomitant]
     Active Substance: HUMAN IMMUNOGLOBULIN G

REACTIONS (3)
  - Injection site haemorrhage [Unknown]
  - Needle issue [Unknown]
  - Intentional product use issue [Unknown]
